FAERS Safety Report 21745237 (Version 1)
Quarter: 2022Q4

REPORT INFORMATION
  Report Type: Spontaneous
  Country: US (occurrence: US)
  Receive Date: 20221219
  Receipt Date: 20221219
  Transmission Date: 20230112
  Serious: Yes (Other)
  Sender: FDA-Public Use
  Company Number: US-SUN PHARMACEUTICAL INDUSTRIES LTD-2022R1-365469

PATIENT
  Sex: Female

DRUGS (1)
  1. ODOMZO [Suspect]
     Active Substance: SONIDEGIB
     Indication: Basal cell carcinoma
     Dosage: 200 MILLIGRAM, QD
     Route: 065
     Dates: start: 20221101

REACTIONS (11)
  - Kidney infection [Unknown]
  - Back pain [Unknown]
  - Blood pressure increased [Unknown]
  - Constipation [Unknown]
  - Chromaturia [Unknown]
  - Dizziness postural [Unknown]
  - Fatigue [Unknown]
  - Feeling abnormal [Unknown]
  - Illness [Unknown]
  - Nasopharyngitis [Unknown]
  - Pain [Unknown]
